FAERS Safety Report 7292923-3 (Version None)
Quarter: 2011Q1

REPORT INFORMATION
  Report Type: 
  Country: None (occurrence: None)
  Receive Date: 20110203
  Receipt Date: 20090622
  Transmission Date: 20110831
  Serious: No
  Sender: FDA-Public Use
  Company Number: 2009-00069

PATIENT
  Age: 7 Year
  Sex: Female
  Weight: 24.9478 kg

DRUGS (2)
  1. ZICAM COLD REMEDY GEL SWABS [Suspect]
     Dosage: SPORADIC X 1 YEAR
     Dates: start: 20080101, end: 20090601
  2. KIDZ ZYRTEC [Concomitant]

REACTIONS (2)
  - HYPOSMIA [None]
  - UPPER RESPIRATORY TRACT INFECTION [None]
